FAERS Safety Report 8987368 (Version 1)
Quarter: 2012Q4

REPORT INFORMATION
  Report Type: 
  Country: US (occurrence: US)
  Receive Date: 20121226
  Receipt Date: 20121226
  Transmission Date: 20130627
  Serious: Yes (Hospitalization, Other)
  Sender: FDA-Public Use
  Company Number: US-ROCHE-1029016

PATIENT

DRUGS (4)
  1. BEVACIZUMAB [Suspect]
     Indication: BREAST CANCER
     Dosage: for 9 doses
     Route: 041
  2. DOXORUBICIN [Suspect]
     Indication: BREAST CANCER
     Dosage: for 3 doses
     Route: 042
  3. PACLITAXEL [Suspect]
     Indication: BREAST CANCER
     Dosage: for 3 doses
     Route: 042
  4. CYCLOPHOSPHAMIDE [Suspect]
     Indication: BREAST CANCER
     Dosage: for 3 doses
     Route: 042

REACTIONS (7)
  - Palmar-plantar erythrodysaesthesia syndrome [Unknown]
  - Hypertension [Unknown]
  - Impaired healing [Unknown]
  - Mucosal inflammation [Unknown]
  - Proteinuria [Unknown]
  - Neutropenia [Unknown]
  - Cardiac failure [Unknown]
